FAERS Safety Report 9178756 (Version 1)
Quarter: 2013Q1

REPORT INFORMATION
  Report Type: Report from Study
  Country: GB (occurrence: GB)
  Receive Date: 20130321
  Receipt Date: 20130321
  Transmission Date: 20140127
  Serious: Yes (Other)
  Sender: FDA-Public Use
  Company Number: GB-ROCHE-1204233

PATIENT
  Sex: 0

DRUGS (4)
  1. CAPECITABINE [Suspect]
     Indication: RECTAL CANCER
     Route: 048
  2. CETUXIMAB [Suspect]
     Indication: RECTAL CANCER
     Dosage: 1 WEEK BEFORE RADIOTHERAPY
     Route: 042
  3. CETUXIMAB [Suspect]
     Dosage: WEEKS 1-5 OF RADIOTHERAPY
     Route: 042
  4. IRINOTECAN [Suspect]
     Indication: RECTAL CANCER
     Dosage: WEEKS 1-4 OF RADIOTHERAPY
     Route: 042

REACTIONS (5)
  - Febrile neutropenia [Unknown]
  - Thrombosis [Unknown]
  - Fatigue [Unknown]
  - Dermatitis acneiform [Unknown]
  - Diarrhoea [Unknown]
